FAERS Safety Report 8552483-3 (Version None)
Quarter: 2012Q3

REPORT INFORMATION
  Report Type: 
  Country: None (occurrence: None)
  Receive Date: 20120719
  Receipt Date: 20120704
  Transmission Date: 20120928
  Serious: Yes (Death)
  Sender: FDA-Public Use
  Company Number: 2012US-57052

PATIENT

DRUGS (6)
  1. CLOPIDOGREL [Concomitant]
  2. TIROFIBAN [Concomitant]
  3. ENOXAPARIN [Concomitant]
  4. PANTOPRAZOLE [Suspect]
     Indication: PROPHYLAXIS
     Dosage: 40 MG, BID, ORAL
     Route: 048
  5. PANTOPRAZOLE [Suspect]
     Indication: PROPHYLAXIS
     Dosage: 40 MG, DAILY, INTRAVENOUS
     Route: 042
  6. ASPIRIN [Concomitant]

REACTIONS (1)
  - DEATH [None]
